FAERS Safety Report 6047124-3 (Version None)
Quarter: 2009Q1

REPORT INFORMATION
  Report Type: 
  Country: None (occurrence: None)
  Receive Date: 20090122
  Receipt Date: 20090113
  Transmission Date: 20090719
  Serious: Yes (Hospitalization)
  Sender: FDA-Public Use
  Company Number: PHHY2009DE01548

PATIENT
  Age: 58 Year
  Sex: Female

DRUGS (6)
  1. METOPROLOL [Suspect]
     Indication: HYPERTENSION
     Dosage: 100 MG, QD
     Route: 048
  2. LYRICA [Suspect]
     Indication: NEUROPATHY PERIPHERAL
     Dosage: 75 MG, 2 IN 2 DAYS
     Route: 048
  3. MANINIL ^BERLIN-CHEMIE^ [Suspect]
     Indication: TYPE 2 DIABETES MELLITUS
     Dosage: 1.75 MG, 2 IN 2 DAYS
     Route: 048
     Dates: end: 20081026
  4. CITALOPRAM HYDROBROMIDE [Concomitant]
     Indication: DEPRESSION
     Dosage: 20 MG, QD
     Route: 048
  5. DELIX PLUS [Concomitant]
     Indication: HYPERTENSION
     Dosage: 5 MG, QD
     Route: 048
  6. EBIXA [Concomitant]
     Indication: DEMENTIA
     Dosage: 10 MG, QD
     Route: 048

REACTIONS (1)
  - HYPOGLYCAEMIA [None]
